FAERS Safety Report 13509480 (Version 3)
Quarter: 2017Q2

REPORT INFORMATION
  Report Type: Spontaneous
  Country: IT (occurrence: IT)
  Receive Date: 20170503
  Receipt Date: 20170516
  Transmission Date: 20170830
  Serious: Yes (Hospitalization)
  Sender: FDA-Public Use
  Company Number: PHHY2017IT062339

PATIENT
  Age: 51 Year
  Sex: Male

DRUGS (2)
  1. ESCITALOPRAM [Suspect]
     Active Substance: ESCITALOPRAM OXALATE
     Indication: INTENTIONAL SELF-INJURY
     Dosage: 10 MG, UNK
     Route: 048
     Dates: start: 20170410, end: 20170410
  2. XANAX [Suspect]
     Active Substance: ALPRAZOLAM
     Indication: INTENTIONAL SELF-INJURY
     Dosage: 0.25 MG, UNK
     Route: 048
     Dates: start: 20170410, end: 20170410

REACTIONS (4)
  - Intentional self-injury [Unknown]
  - Agitation [Unknown]
  - Drug use disorder [Unknown]
  - Crying [Unknown]

NARRATIVE: CASE EVENT DATE: 20170410
